FAERS Safety Report 20517117 (Version 4)
Quarter: 2022Q3

REPORT INFORMATION
  Report Type: Report from Study
  Country: JP (occurrence: JP)
  Receive Date: 20220225
  Receipt Date: 20220719
  Transmission Date: 20221026
  Serious: Yes (Life-Threatening, Hospitalization, Other)
  Sender: FDA-Public Use
  Company Number: JP-ASTELLAS-2022JP002674

PATIENT
  Age: 75 Year
  Sex: Male
  Weight: 60 kg

DRUGS (16)
  1. ENFORTUMAB VEDOTIN [Suspect]
     Active Substance: ENFORTUMAB VEDOTIN
     Indication: Bladder cancer
     Route: 041
     Dates: start: 20220126, end: 20220209
  2. ENFORTUMAB VEDOTIN [Suspect]
     Active Substance: ENFORTUMAB VEDOTIN
     Indication: Transitional cell carcinoma
  3. PREDNISOLONE [Suspect]
     Active Substance: PREDNISOLONE
     Indication: Stevens-Johnson syndrome
     Dosage: 60 MG(1 MG/KG), ONCE DAILY
     Route: 048
     Dates: start: 20220217, end: 20220222
  4. PREDNISOLONE [Suspect]
     Active Substance: PREDNISOLONE
     Indication: Toxic epidermal necrolysis
     Route: 048
     Dates: start: 20220223, end: 20220226
  5. PREDNISOLONE [Suspect]
     Active Substance: PREDNISOLONE
     Route: 048
     Dates: start: 20220227, end: 20220301
  6. PREDNISOLONE [Suspect]
     Active Substance: PREDNISOLONE
     Route: 048
     Dates: start: 20220302, end: 20220304
  7. PREDNISOLONE [Suspect]
     Active Substance: PREDNISOLONE
     Route: 048
     Dates: start: 20220305, end: 20220308
  8. PREDNISOLONE [Suspect]
     Active Substance: PREDNISOLONE
     Route: 048
     Dates: start: 20220309, end: 20220310
  9. SOLU-MEDROL [Concomitant]
     Active Substance: METHYLPREDNISOLONE SODIUM SUCCINATE
     Indication: Stevens-Johnson syndrome
     Route: 065
     Dates: start: 20220214, end: 20220216
  10. SOLU-MEDROL [Concomitant]
     Active Substance: METHYLPREDNISOLONE SODIUM SUCCINATE
     Indication: Toxic epidermal necrolysis
  11. DIFLORASONE DIACETATE [Concomitant]
     Active Substance: DIFLORASONE DIACETATE
     Indication: Stevens-Johnson syndrome
     Route: 065
     Dates: start: 20220214, end: 20220217
  12. DIFLORASONE DIACETATE [Concomitant]
     Active Substance: DIFLORASONE DIACETATE
     Indication: Toxic epidermal necrolysis
  13. KENKETU GLOVENIN-I [Concomitant]
     Active Substance: HUMAN IMMUNOGLOBULIN G
     Indication: Stevens-Johnson syndrome
     Route: 065
     Dates: start: 20220217, end: 20220221
  14. KENKETU GLOVENIN-I [Concomitant]
     Active Substance: HUMAN IMMUNOGLOBULIN G
     Indication: Toxic epidermal necrolysis
  15. Azunol [Concomitant]
     Indication: Stevens-Johnson syndrome
     Route: 065
     Dates: start: 20220218, end: 20220307
  16. Azunol [Concomitant]
     Indication: Toxic epidermal necrolysis

REACTIONS (7)
  - Ascites [Unknown]
  - Pyrexia [Not Recovered/Not Resolved]
  - Delirium [Not Recovered/Not Resolved]
  - Stevens-Johnson syndrome [Recovered/Resolved]
  - Toxic epidermal necrolysis [Recovered/Resolved]
  - Platelet count decreased [Not Recovered/Not Resolved]
  - Blood glucose increased [Unknown]

NARRATIVE: CASE EVENT DATE: 20220201
